FAERS Safety Report 6679878-7 (Version None)
Quarter: 2010Q2

REPORT INFORMATION
  Report Type: 
  Country: None (occurrence: None)
  Receive Date: 20100413
  Receipt Date: 20100407
  Transmission Date: 20101027
  Serious: Yes (Hospitalization, Other)
  Sender: FDA-Public Use
  Company Number: US-ELI_LILLY_AND_COMPANY-US201003005734

PATIENT
  Sex: Female

DRUGS (3)
  1. HUMALOG [Suspect]
     Indication: DIABETES MELLITUS
     Dosage: 1.25 U, EVERY HOUR
     Route: 058
     Dates: start: 20020101
  2. HUMALOG [Suspect]
     Dosage: 1.25 U, EVERY HOUR
     Route: 058
     Dates: start: 20020101
  3. HUMALOG [Suspect]
     Dosage: 1.25 U, EVERY HOUR
     Route: 058
     Dates: start: 20020101

REACTIONS (4)
  - BLOOD GLUCOSE INCREASED [None]
  - DRUG INEFFECTIVE [None]
  - PANCREATIC DISORDER [None]
  - RENAL AND PANCREAS TRANSPLANT [None]
